FAERS Safety Report 16494204 (Version 4)
Quarter: 2022Q3

REPORT INFORMATION
  Report Type: Report from Study
  Country: CN (occurrence: None)
  Receive Date: 20190628
  Receipt Date: 20220811
  Transmission Date: 20221027
  Serious: Yes (Hospitalization)
  Sender: FDA-Public Use
  Company Number: CN-ROCHE-2342967

PATIENT
  Age: 64 Year
  Sex: Male

DRUGS (26)
  1. ATEZOLIZUMAB [Suspect]
     Active Substance: ATEZOLIZUMAB
     Indication: Hepatocellular carcinoma
     Dosage: DATE OF MOST RECENT DOSE OF ATEZOLIZUMAB PRIOR TO SAE (UPPER GASTROINTESTINAL BLEED) ONSET: 09/MAY/2
     Route: 041
     Dates: start: 20181012
  2. BEVACIZUMAB [Suspect]
     Active Substance: BEVACIZUMAB
     Indication: Hepatocellular carcinoma
     Dosage: DOSE OF LAST BEVACIZUMAB ADMINISTERED: 975 MG?DATE OF MOST RECENT DOSE OF BEVACIZUMAB: 09/MAY/2019
     Route: 042
     Dates: start: 20181012
  3. EUTHYROX [Concomitant]
     Active Substance: LEVOTHYROXINE SODIUM
     Indication: Hypothyroidism
     Dates: start: 201802
  4. BARACLUDE [Concomitant]
     Active Substance: ENTECAVIR
     Indication: Hepatitis B
     Dates: start: 201510
  5. ASPIRIN [Concomitant]
     Active Substance: ASPIRIN
     Indication: Cerebrovascular accident
     Dosage: 1 TABLET
     Route: 048
     Dates: start: 20190524
  6. LIPITOR [Concomitant]
     Active Substance: ATORVASTATIN CALCIUM
     Indication: Cerebrovascular accident
     Dosage: 1 TABLET
     Route: 048
     Dates: start: 20190523
  7. PLAVIX [Concomitant]
     Active Substance: CLOPIDOGREL BISULFATE
     Indication: Cerebrovascular accident
     Dosage: 1 TABLET
     Route: 048
     Dates: start: 20190523
  8. ACETAMINOPHEN [Concomitant]
     Active Substance: ACETAMINOPHEN
     Route: 048
     Dates: start: 20190523, end: 20190524
  9. TYLENOL [Concomitant]
     Active Substance: ACETAMINOPHEN
     Indication: Cerebrovascular accident
     Dates: start: 20190523, end: 20190524
  10. DOCUSATE [Concomitant]
     Active Substance: DOCUSATE
     Indication: Cerebrovascular accident
     Dates: start: 20190523, end: 20190524
  11. COLACE [Concomitant]
     Active Substance: DOCUSATE SODIUM
     Indication: Cerebrovascular accident
     Dates: start: 20190523, end: 20190524
  12. LOVENOX [Concomitant]
     Active Substance: ENOXAPARIN SODIUM
     Indication: Cerebrovascular accident
     Dates: start: 20190523, end: 20190523
  13. SENOKOT [Concomitant]
     Active Substance: SENNOSIDES
     Indication: Cerebrovascular accident
     Dates: start: 20190523, end: 20190523
  14. OLMESARTAN MEDOXOMIL [Concomitant]
     Active Substance: OLMESARTAN MEDOXOMIL
     Route: 048
  15. ENTECAVIR [Concomitant]
     Active Substance: ENTECAVIR
     Route: 048
  16. LEVOTHYROXINE SODIUM [Concomitant]
     Active Substance: LEVOTHYROXINE SODIUM
     Route: 048
  17. INDERAL [Concomitant]
     Active Substance: PROPRANOLOL HYDROCHLORIDE
     Dosage: 1 TABLET
     Route: 048
     Dates: start: 20190607
  18. CARAFATE [Concomitant]
     Active Substance: SUCRALFATE
     Dosage: 1 TABLET
     Route: 048
     Dates: start: 20190606
  19. PANTOPRAZOLE [Concomitant]
     Active Substance: PANTOPRAZOLE
     Dosage: 1 TABLET, 2 TIMES A DAY FOR 2 MONTHS THEN 1 TABLET, DAILY
     Dates: start: 20190606
  20. SODIUM CHLORIDE [Concomitant]
     Active Substance: SODIUM CHLORIDE
  21. CHRYSANTHEMUM SPP.;CLONIDINE HYDROCHLORIDE;CONCHA MARGARITIFERA;HYDROC [Concomitant]
     Indication: Hypertension
     Dates: start: 20190404, end: 20190509
  22. OLMESARTAN MEDOXOMIL [Concomitant]
     Active Substance: OLMESARTAN MEDOXOMIL
     Indication: Hypertension
     Dates: start: 20190509, end: 20190531
  23. LORATADINE [Concomitant]
     Active Substance: LORATADINE
     Indication: Prophylaxis
     Dates: start: 20190507, end: 20190507
  24. LOPRAMIDE [Concomitant]
     Dates: start: 20190507, end: 20190507
  25. GADOPENTETIC ACID [Concomitant]
     Active Substance: GADOPENTETIC ACID
     Dates: start: 20190508, end: 20190508
  26. SODIUM CHLORIDE [Concomitant]
     Active Substance: SODIUM CHLORIDE
     Dates: start: 20190508, end: 20190508

REACTIONS (1)
  - Upper gastrointestinal haemorrhage [Recovered/Resolved]

NARRATIVE: CASE EVENT DATE: 20190531
